FAERS Safety Report 7932891-1 (Version None)
Quarter: 2011Q4

REPORT INFORMATION
  Report Type: 
  Country: None (occurrence: None)
  Receive Date: 20111122
  Receipt Date: 20111116
  Transmission Date: 20120403
  Serious: Yes (Death)
  Sender: FDA-Public Use
  Company Number: KR-ASTELLAS-2011JP008426

PATIENT

DRUGS (5)
  1. BUSULFEX [Concomitant]
     Dosage: 6.4 MG/KG, UNKNOWN/D
     Route: 065
  2. TACROLIMUS [Suspect]
     Indication: PROPHYLAXIS AGAINST GRAFT VERSUS HOST DISEASE
     Route: 065
  3. METHOTREXATE [Suspect]
     Indication: PROPHYLAXIS AGAINST GRAFT VERSUS HOST DISEASE
     Route: 065
  4. ANTI-THYMOCYTE GLOBULIN NOS [Concomitant]
     Dosage: 5.0 MG/KG, UNKNOWN/D
     Route: 065
  5. FLUDARABINE PHOSPHATE [Concomitant]
     Dosage: 150 MG/M2, UNKNOWN/D
     Route: 065

REACTIONS (2)
  - VENOOCCLUSIVE DISEASE [None]
  - CYTOMEGALOVIRUS ENTEROCOLITIS [None]
